FAERS Safety Report 4289749-1 (Version None)
Quarter: 2004Q1

REPORT INFORMATION
  Report Type: 
  Country: None (occurrence: None)
  Receive Date: 20040210
  Receipt Date: 20031014
  Transmission Date: 20041129
  Serious: Yes (Other)
  Sender: FDA-Public Use
  Company Number: US-GLAXOSMITHKLINE-A0430280A

PATIENT
  Age: 64 Year
  Sex: Female
  Weight: 97.7 kg

DRUGS (2)
  1. AVANDIA [Suspect]
     Indication: DIABETES MELLITUS NON-INSULIN-DEPENDENT
     Route: 048
     Dates: end: 20030417
  2. PLAVIX [Concomitant]
     Indication: TRANSIENT ISCHAEMIC ATTACK

REACTIONS (7)
  - CARDIAC FAILURE CONGESTIVE [None]
  - FLUID RETENTION [None]
  - GASTRIC DISORDER [None]
  - HEPATOCELLULAR DAMAGE [None]
  - JAUNDICE [None]
  - NAUSEA [None]
  - OEDEMA [None]
